FAERS Safety Report 4341224-1 (Version None)
Quarter: 2004Q1

REPORT INFORMATION
  Report Type: 
  Country: None (occurrence: None)
  Receive Date: 20040329
  Receipt Date: 20040217
  Transmission Date: 20041129
  Serious: No
  Sender: FDA-Public Use
  Company Number: 04P-163-0251177-00

PATIENT
  Age: 75 Year
  Sex: Female

DRUGS (8)
  1. HUMIRA [Suspect]
     Indication: RHEUMATOID ARTHRITIS
     Dosage: 40 MG, 1 IN 2 WK, SUBCUTANEOUS
     Route: 058
     Dates: start: 20031101
  2. ALENDRONATE SODIUM [Concomitant]
  3. ROFECOXIB [Concomitant]
  4. RALOXIFENE HCL [Concomitant]
  5. LEVOTHYROXINE SODIUM [Concomitant]
  6. ACETAMINOPHEN [Concomitant]
  7. CALCIUM [Concomitant]
  8. MULTIVITAMIN [Concomitant]

REACTIONS (1)
  - INJECTION SITE STINGING [None]
